FAERS Safety Report 5096948-8 (Version None)
Quarter: 2006Q3

REPORT INFORMATION
  Report Type: 
  Country: None (occurrence: None)
  Receive Date: 20060906
  Receipt Date: 20060827
  Transmission Date: 20061208
  Serious: Yes (Other)
  Sender: FDA-Public Use
  Company Number: PHBS2006GT13078

PATIENT
  Sex: Male

DRUGS (1)
  1. LAMISIL [Suspect]
     Dosage: 250 MG/DAY
     Route: 048

REACTIONS (2)
  - DYSPEPSIA [None]
  - GASTRITIS HAEMORRHAGIC [None]
